FAERS Safety Report 17853890 (Version 3)
Quarter: 2020Q2

REPORT INFORMATION
  Report Type: Report from Study
  Country: None (occurrence: ES)
  Receive Date: 20200602
  Receipt Date: 20200612
  Transmission Date: 20200714
  Serious: Yes (Other)
  Sender: FDA-Public Use
  Company Number: ES-ABBVIE-20K-144-3425050-00

PATIENT
  Age: 84 Year
  Sex: Male

DRUGS (3)
  1. DUODOPA [Suspect]
     Active Substance: CARBIDOPA\LEVODOPA
     Indication: PARKINSON^S DISEASE
     Route: 050
     Dates: start: 20120127, end: 20200604
  2. DUODOPA [Suspect]
     Active Substance: CARBIDOPA\LEVODOPA
     Dosage: INCREASE 0.2 ML OF CONTINUOUS DOSE
     Route: 050
     Dates: start: 20200604
  3. MERITENE [Concomitant]
     Indication: PRODUCT USED FOR UNKNOWN INDICATION

REACTIONS (7)
  - Weight decreased [Not Recovered/Not Resolved]
  - Depressed mood [Recovering/Resolving]
  - Laziness [Not Recovered/Not Resolved]
  - Mobility decreased [Recovering/Resolving]
  - Therapeutic product effect incomplete [Unknown]
  - Dysphagia [Not Recovered/Not Resolved]
  - Tremor [Unknown]

NARRATIVE: CASE EVENT DATE: 2020
